FAERS Safety Report 23997216 (Version 1)
Quarter: 2024Q2

REPORT INFORMATION
  Report Type: Spontaneous
  Country: US (occurrence: US)
  Receive Date: 20240621
  Receipt Date: 20240621
  Transmission Date: 20240715
  Serious: No
  Sender: FDA-Public Use
  Company Number: US-AUROBINDO-AUR-APL-2023-045211

PATIENT
  Sex: Male

DRUGS (1)
  1. ZOLPIDEM TARTRATE [Suspect]
     Active Substance: ZOLPIDEM TARTRATE
     Indication: Product used for unknown indication
     Dosage: ONE TABLET AT NIGHT
     Route: 048
     Dates: start: 20230621

REACTIONS (4)
  - Insomnia [Unknown]
  - Abnormal dreams [Unknown]
  - Brain fog [Unknown]
  - Suspected counterfeit product [Unknown]
